FAERS Safety Report 9190434 (Version 2)
Quarter: 2013Q2

REPORT INFORMATION
  Report Type: Spontaneous
  Country: DK (occurrence: DK)
  Receive Date: 20130326
  Receipt Date: 20130501
  Transmission Date: 20140414
  Serious: Yes (Other)
  Sender: FDA-Public Use
  Company Number: NO-AMGEN-NORSP2013017253

PATIENT
  Age: 81 Year
  Sex: Female

DRUGS (1)
  1. PROLIA [Suspect]
     Indication: OSTEOPOROSIS
     Dosage: 60 MG, Q6MO
     Dates: start: 20121010

REACTIONS (11)
  - Toxicity to various agents [Unknown]
  - Malaise [Unknown]
  - Pain [Unknown]
  - Burning sensation [Unknown]
  - Leukocytosis [Unknown]
  - Eosinophilia [Unknown]
  - Pruritus [Unknown]
  - Eczema [Unknown]
  - Rash [Unknown]
  - Dermatitis [Unknown]
  - Urticaria [Unknown]
